FAERS Safety Report 16324358 (Version 1)
Quarter: 2019Q2

REPORT INFORMATION
  Report Type: Spontaneous
  Country: US (occurrence: US)
  Receive Date: 20190517
  Receipt Date: 20190517
  Transmission Date: 20190711
  Serious: Yes (Hospitalization)
  Sender: FDA-Public Use
  Company Number: US-TEVA-2019-US-1050977

PATIENT
  Age: 60 Year
  Sex: Female

DRUGS (15)
  1. ADVAIR DISKU [Concomitant]
  2. ALBUTEROL. [Concomitant]
     Active Substance: ALBUTEROL
  3. LYRICA [Concomitant]
     Active Substance: PREGABALIN
  4. COPAXONE [Suspect]
     Active Substance: GLATIRAMER ACETATE
     Indication: MULTIPLE SCLEROSIS
     Dosage: COPAXONE 40 MG : PRE FILLED SYRINGE
     Route: 058
     Dates: start: 20170224
  5. PANTOPRAZOLE [Concomitant]
     Active Substance: PANTOPRAZOLE
  6. METHOCARBAM [Concomitant]
     Active Substance: METHOCARBAMOL
  7. ALPRAZOLAM. [Concomitant]
     Active Substance: ALPRAZOLAM
  8. DULOXETINE. [Concomitant]
     Active Substance: DULOXETINE
  9. FUROSEMID [Concomitant]
     Active Substance: FUROSEMIDE
  10. OXYCODONE [Concomitant]
     Active Substance: OXYCODONE
  11. EIIQUIS [Concomitant]
  12. AZITHROMYCIN ANHYDROUS. [Concomitant]
     Active Substance: AZITHROMYCIN ANHYDROUS
  13. ALLOPURINOL. [Concomitant]
     Active Substance: ALLOPURINOL
  14. TOPIRAMATE. [Concomitant]
     Active Substance: TOPIRAMATE
  15. VENTOLIN [Concomitant]
     Active Substance: ALBUTEROL SULFATE

REACTIONS (2)
  - Dyschromatopsia [Not Recovered/Not Resolved]
  - Visual impairment [Not Recovered/Not Resolved]

NARRATIVE: CASE EVENT DATE: 201904
